FAERS Safety Report 4827698-8 (Version None)
Quarter: 2005Q4

REPORT INFORMATION
  Report Type: 
  Country: None (occurrence: None)
  Receive Date: 20051114
  Receipt Date: 20050930
  Transmission Date: 20060501
  Serious: Yes (Hospitalization, Disabling)
  Sender: FDA-Public Use
  Company Number: US-MERCK-0510USA01908

PATIENT
  Age: 64 Year
  Sex: Male
  Weight: 93 kg

DRUGS (3)
  1. VIOXX [Suspect]
     Indication: ARTHRITIS
     Route: 048
     Dates: start: 20011201, end: 20040901
  2. TOPROL-XL [Concomitant]
     Route: 065
  3. HYDRODIURIL [Concomitant]
     Route: 048

REACTIONS (2)
  - BLOOD PRESSURE [None]
  - MYOCARDIAL INFARCTION [None]
